FAERS Safety Report 11265055 (Version 4)
Quarter: 2015Q3

REPORT INFORMATION
  Report Type: Report from Study
  Country: CA (occurrence: CA)
  Receive Date: 20150713
  Receipt Date: 20150923
  Transmission Date: 20151125
  Serious: Yes (Hospitalization, Other)
  Sender: FDA-Public Use
  Company Number: PHHY2015CA055986

PATIENT
  Age: 54 Year
  Sex: Female

DRUGS (3)
  1. SANDOSTATIN LAR DEPOT [Suspect]
     Active Substance: OCTREOTIDE ACETATE
     Indication: PANCREATIC CARCINOMA
     Dosage: 20 MG, QMO (ONCE A MONTH)
     Route: 030
     Dates: start: 20150508
  2. SANDOSTATIN LAR DEPOT [Suspect]
     Active Substance: OCTREOTIDE ACETATE
     Dosage: 10 MG, QMO (ONCE A MONTH)
     Route: 030
  3. SANDOSTATIN [Suspect]
     Active Substance: OCTREOTIDE ACETATE
     Indication: PANCREATIC CARCINOMA
     Dosage: 150 UG, TID (CONTINUED 2 WEEKS POST 1ST LAR)
     Route: 058
     Dates: start: 201504, end: 201505

REACTIONS (10)
  - Pain [Unknown]
  - Abdominal pain [Unknown]
  - Off label use [Unknown]
  - Pyrexia [Unknown]
  - Vomiting [Unknown]
  - Injection site pain [Unknown]
  - Diarrhoea [Unknown]
  - Bile duct obstruction [Unknown]
  - Blood pressure increased [Unknown]
  - Stent malfunction [Unknown]

NARRATIVE: CASE EVENT DATE: 2015
